FAERS Safety Report 10170986 (Version 1)
Quarter: 2014Q2

REPORT INFORMATION
  Report Type: Spontaneous
  Country: US (occurrence: None)
  Receive Date: 20140513
  Receipt Date: 20140513
  Transmission Date: 20141212
  Serious: No
  Sender: FDA-Public Use
  Company Number: None

PATIENT
  Age: 56 Year
  Sex: Female

DRUGS (1)
  1. REMICADE [Suspect]
     Indication: POLYARTHRITIS
     Dosage: 300 MG Q8WEEKS IV
     Route: 042
     Dates: start: 20130712

REACTIONS (2)
  - Feeling abnormal [None]
  - Gastrointestinal disorder [None]
